FAERS Safety Report 14994479 (Version 1)
Quarter: 2018Q2

REPORT INFORMATION
  Report Type: Spontaneous
  Country: US (occurrence: US)
  Receive Date: 20180521
  Receipt Date: 20180521
  Transmission Date: 20180711
  Serious: Yes (Death, Life-Threatening, Hospitalization, Disabling)
  Sender: FDA-Public Use
  Company Number: None

PATIENT
  Age: 67 Year
  Sex: Female
  Weight: 44.1 kg

DRUGS (1)
  1. HARVONI [Suspect]
     Active Substance: LEDIPASVIR\SOFOSBUVIR
     Indication: HEPATITIS C

REACTIONS (6)
  - Fatigue [None]
  - Vision blurred [None]
  - Headache [None]
  - Neuropathy peripheral [None]
  - Psoriasis [None]
  - Lung neoplasm malignant [None]

NARRATIVE: CASE EVENT DATE: 20120801
